FAERS Safety Report 19229875 (Version 2)
Quarter: 2021Q2

REPORT INFORMATION
  Report Type: Spontaneous
  Country: SK (occurrence: SK)
  Receive Date: 20210506
  Receipt Date: 20210603
  Transmission Date: 20210717
  Serious: Yes (Life-Threatening, Hospitalization)
  Sender: FDA-Public Use
  Company Number: SK-ELI_LILLY_AND_COMPANY-SK202104013244

PATIENT
  Sex: Female

DRUGS (1)
  1. ABEMACICLIB [Suspect]
     Active Substance: ABEMACICLIB
     Indication: BREAST CANCER
     Dosage: 150 MG, BID
     Route: 048
     Dates: start: 202101

REACTIONS (7)
  - Bacterial infection [Unknown]
  - Malaise [Unknown]
  - Asthenia [Unknown]
  - Hepatotoxicity [Unknown]
  - Fatigue [Unknown]
  - C-reactive protein increased [Unknown]
  - Pyrexia [Unknown]
